FAERS Safety Report 20476062 (Version 3)
Quarter: 2022Q2

REPORT INFORMATION
  Report Type: Report from Study
  Country: BR (occurrence: BR)
  Receive Date: 20220215
  Receipt Date: 20220401
  Transmission Date: 20220720
  Serious: Yes (Life-Threatening, Other)
  Sender: FDA-Public Use
  Company Number: BR-NOVARTISPH-NVSC2022BR022055

PATIENT
  Age: 42 Year
  Sex: Female

DRUGS (6)
  1. AFINITOR [Suspect]
     Active Substance: EVEROLIMUS
     Indication: Breast neoplasm
     Dosage: 10 MG
     Route: 065
     Dates: start: 20211221
  2. PIQRAY [Suspect]
     Active Substance: ALPELISIB
     Indication: Breast neoplasm
     Dosage: 300 MG, QD (AFTER 10 DAYS)
     Route: 065
     Dates: start: 20211105
  3. PIQRAY [Suspect]
     Active Substance: ALPELISIB
     Dosage: 150 MG
     Route: 065
     Dates: start: 20211115
  4. PIQRAY [Suspect]
     Active Substance: ALPELISIB
     Dosage: 200 MG, QD
     Route: 065
  5. FULVESTRANT [Concomitant]
     Active Substance: FULVESTRANT
     Indication: Product used for unknown indication
     Dosage: 1000 MG
     Route: 065
  6. BETAMETHASONE [Concomitant]
     Active Substance: BETAMETHASONE
     Indication: Product used for unknown indication
     Dosage: UNK
     Route: 065

REACTIONS (38)
  - Hypersensitivity [Unknown]
  - Genital rash [Recovered/Resolved]
  - Rash [Recovered/Resolved]
  - Oral mucosal eruption [Recovered/Resolved]
  - Breast injury [Not Recovered/Not Resolved]
  - Skin discolouration [Recovered/Resolved]
  - Rash [Recovered/Resolved]
  - Dry throat [Not Recovered/Not Resolved]
  - Nail disorder [Unknown]
  - Dry mouth [Not Recovered/Not Resolved]
  - Blood glucose increased [Unknown]
  - Aphthous ulcer [Recovering/Resolving]
  - Skin exfoliation [Not Recovered/Not Resolved]
  - Mucosal dryness [Recovered/Resolved]
  - Symptom recurrence [Unknown]
  - Gingival pain [Recovering/Resolving]
  - Oral mucosal blistering [Recovered/Resolved]
  - Sinusitis [Unknown]
  - Dry skin [Not Recovered/Not Resolved]
  - Thirst [Not Recovered/Not Resolved]
  - Tongue biting [Unknown]
  - Oral herpes [Unknown]
  - Sinus pain [Unknown]
  - Nasal septum disorder [Unknown]
  - Stress [Unknown]
  - Headache [Unknown]
  - Diarrhoea [Unknown]
  - Mucosal inflammation [Recovering/Resolving]
  - Peripheral swelling [Not Recovered/Not Resolved]
  - Hair texture abnormal [Not Recovered/Not Resolved]
  - Swelling face [Not Recovered/Not Resolved]
  - Onychoclasis [Not Recovered/Not Resolved]
  - Panic reaction [Not Recovered/Not Resolved]
  - Oropharyngeal pain [Unknown]
  - Ear infection [Recovering/Resolving]
  - Gingivitis [Recovering/Resolving]
  - Nausea [Unknown]
  - Dyspepsia [Unknown]

NARRATIVE: CASE EVENT DATE: 20210901
